FAERS Safety Report 25659828 (Version 4)
Quarter: 2025Q3

REPORT INFORMATION
  Report Type: Spontaneous
  Country: US (occurrence: US)
  Receive Date: 20250808
  Receipt Date: 20250811
  Transmission Date: 20251020
  Serious: No
  Sender: SANDOZ
  Company Number: US-SANDOZ-SDZ2025US057270

PATIENT

DRUGS (1)
  1. ESTRADIOL [Suspect]
     Active Substance: ESTRADIOL
     Indication: Product used for unknown indication
     Route: 062

REACTIONS (4)
  - Application site scar [Unknown]
  - Application site irritation [Unknown]
  - Product use complaint [Unknown]
  - Product adhesion issue [Unknown]
